FAERS Safety Report 12318703 (Version 9)
Quarter: 2016Q4

REPORT INFORMATION
  Report Type: Spontaneous
  Country: US (occurrence: US)
  Receive Date: 20160429
  Receipt Date: 20161217
  Transmission Date: 20170207
  Serious: No
  Sender: FDA-Public Use
  Company Number: US-009507513-1604USA017851

PATIENT
  Sex: Female

DRUGS (1)
  1. IMPLANON [Suspect]
     Active Substance: ETONOGESTREL
     Indication: CONTRACEPTION
     Dosage: 1 IMPLANT, UNK
     Route: 059
     Dates: start: 2013

REACTIONS (5)
  - Complication associated with device [Recovered/Resolved]
  - Device kink [Recovered/Resolved]
  - Migration of implanted drug [Recovered/Resolved]
  - Complication of device removal [Recovered/Resolved]
  - Device difficult to use [Recovered/Resolved]
